FAERS Safety Report 23520798 (Version 1)
Quarter: 2024Q1

REPORT INFORMATION
  Report Type: Report from Study
  Country: JP (occurrence: JP)
  Receive Date: 20240214
  Receipt Date: 20240214
  Transmission Date: 20240410
  Serious: Yes (Other)
  Sender: FDA-Public Use
  Company Number: JP-CELLTRION INC.-2021JP003675

PATIENT

DRUGS (10)
  1. INFLIXIMAB-DYYB [Suspect]
     Active Substance: INFLIXIMAB-DYYB
     Indication: Crohn^s disease
     Dosage: 355 MILLIGRAM (WEIGHT: 71KG)
     Route: 041
     Dates: start: 20190108, end: 20190108
  2. INFLIXIMAB-DYYB [Suspect]
     Active Substance: INFLIXIMAB-DYYB
     Dosage: 355 MILLIGRAM (WEIGHT: 71KG)
     Route: 041
     Dates: start: 20190304, end: 20190304
  3. INFLIXIMAB-DYYB [Suspect]
     Active Substance: INFLIXIMAB-DYYB
     Dosage: 350 MILLIGRAM (WEIGHT: 70KG)
     Route: 041
     Dates: start: 20190427, end: 20190427
  4. INFLIXIMAB-DYYB [Suspect]
     Active Substance: INFLIXIMAB-DYYB
     Dosage: 350 MILLIGRAM (WEIGHT: 70KG)
     Route: 041
     Dates: start: 20190623, end: 20190623
  5. INFLIXIMAB-DYYB [Suspect]
     Active Substance: INFLIXIMAB-DYYB
     Dosage: 360 MILLIGRAM (WEIGHT: 72KG)
     Route: 041
     Dates: start: 20191210, end: 20191210
  6. INFLIXIMAB-DYYB [Suspect]
     Active Substance: INFLIXIMAB-DYYB
     Dosage: 360 MILLIGRAM (WEIGHT: 72KG)
     Route: 041
     Dates: start: 20201227, end: 20201227
  7. INFLIXIMAB-DYYB [Suspect]
     Active Substance: INFLIXIMAB-DYYB
     Dosage: 370 MILLIGRAM (WEIGHT: 75.4KG)
     Route: 041
     Dates: start: 20220122, end: 20220122
  8. INFLIXIMAB-DYYB [Suspect]
     Active Substance: INFLIXIMAB-DYYB
     Dosage: 395 MILLIGRAM (WEIGHT: 81.2KG)
     Route: 041
     Dates: start: 20230110, end: 20230110
  9. INFLIXIMAB-DYYB [Suspect]
     Active Substance: INFLIXIMAB-DYYB
     Dosage: 390 MILLIGRAM (WEIGHT: 78.1KG)
     Route: 041
     Dates: start: 20231210, end: 20231210
  10. MESALAMINE [Concomitant]
     Active Substance: MESALAMINE
     Dosage: 2000 MILLIGRAM/DAY
     Route: 048

REACTIONS (11)
  - COVID-19 [Recovered/Resolved]
  - Protein urine present [Recovered/Resolved]
  - Urinary occult blood positive [Not Recovered/Not Resolved]
  - Benign prostatic hyperplasia [Recovered/Resolved]
  - Abdominal pain [Recovered/Resolved]
  - Gastrooesophageal reflux disease [Recovered/Resolved]
  - Dyspepsia [Not Recovered/Not Resolved]
  - Chest discomfort [Recovered/Resolved]
  - Intentional product use issue [Unknown]
  - Product use issue [Unknown]
  - Underdose [Unknown]

NARRATIVE: CASE EVENT DATE: 20190101
